FAERS Safety Report 20757345 (Version 1)
Quarter: 2022Q2

REPORT INFORMATION
  Report Type: Spontaneous
  Country: US (occurrence: None)
  Receive Date: 20220427
  Receipt Date: 20220427
  Transmission Date: 20220721
  Serious: Yes (Death)
  Sender: FDA-Public Use
  Company Number: None

PATIENT
  Sex: Male

DRUGS (1)
  1. CREON [Suspect]
     Active Substance: PANCRELIPASE AMYLASE\PANCRELIPASE LIPASE\PANCRELIPASE PROTEASE
     Indication: Pancreatic disorder
     Dosage: OTHER QUANTITY : 24000-76000 UNIT;?FREQUENCY : AS DIRECTED;  ?TAKE 2 CAPSULES BY MOUTH THREE TIMES D
     Route: 048
     Dates: start: 20200909

REACTIONS (1)
  - Death [None]
